FAERS Safety Report 11507440 (Version 1)
Quarter: 2015Q3

REPORT INFORMATION
  Report Type: Spontaneous
  Country: US (occurrence: US)
  Receive Date: 20150903
  Receipt Date: 20150903
  Transmission Date: 20151125
  Serious: No
  Sender: FDA-Public Use
  Company Number: US-ELI_LILLY_AND_COMPANY-US200908002266

PATIENT
  Sex: Female

DRUGS (21)
  1. HUMALOG MIX75/25 [Suspect]
     Active Substance: INSULIN LISPRO
     Dosage: 42 U, EACH EVENING
  2. METFORMIN [Concomitant]
     Active Substance: METFORMIN HYDROCHLORIDE
  3. SYNTHROID [Concomitant]
     Active Substance: LEVOTHYROXINE SODIUM
  4. GLUCOSAMINE [Concomitant]
     Active Substance: GLUCOSAMINE
  5. ZOCOR [Concomitant]
     Active Substance: SIMVASTATIN
  6. ASPIRIN. [Concomitant]
     Active Substance: ASPIRIN
  7. VITAMIN E [Concomitant]
     Active Substance: .ALPHA.-TOCOPHEROL
  8. HUMALOG [Suspect]
     Active Substance: INSULIN LISPRO
     Dosage: 9 U, UNK
  9. ACIPHEX [Concomitant]
     Active Substance: RABEPRAZOLE SODIUM
  10. HYDROCHLOROTHIAZIDE. [Concomitant]
     Active Substance: HYDROCHLOROTHIAZIDE
  11. TRAMADOL. [Concomitant]
     Active Substance: TRAMADOL
     Dosage: UNK, 4/D
  12. CALCIUM [Concomitant]
     Active Substance: CALCIUM
  13. BYETTA [Concomitant]
     Active Substance: EXENATIDE
  14. CENTRUM SILVER [Concomitant]
     Active Substance: VITAMINS
  15. HUMALOG MIX75/25 [Suspect]
     Active Substance: INSULIN LISPRO
     Dosage: 62 U, EACH MORNING
  16. LASIX [Concomitant]
     Active Substance: FUROSEMIDE
  17. MONOPRIL [Concomitant]
     Active Substance: FOSINOPRIL SODIUM
  18. GLYBURIDE. [Concomitant]
     Active Substance: GLYBURIDE
  19. POTASSIUM [Concomitant]
     Active Substance: POTASSIUM
  20. MOBIC [Concomitant]
     Active Substance: MELOXICAM
  21. XANAX [Concomitant]
     Active Substance: ALPRAZOLAM
     Indication: ANXIETY
     Dosage: UNK, AS NEEDED

REACTIONS (4)
  - Drug dispensing error [Unknown]
  - Wrong drug administered [Unknown]
  - Muscle spasms [Unknown]
  - Eye disorder [Unknown]
